FAERS Safety Report 8921426 (Version 1)
Quarter: 2012Q4

REPORT INFORMATION
  Report Type: 
  Country: US (occurrence: US)
  Receive Date: 20121122
  Receipt Date: 20121122
  Transmission Date: 20130627
  Serious: No
  Sender: FDA-Public Use
  Company Number: US-B.I. PHARMACEUTICALS,INC./RIDGEFIELD-2012-BI-00958BP

PATIENT
  Age: 69 None
  Sex: Female
  Weight: 59 kg

DRUGS (1)
  1. SPIRIVA [Suspect]
     Indication: CHRONIC OBSTRUCTIVE PULMONARY DISEASE
     Dosage: 18 mcg
     Route: 055
     Dates: start: 201208, end: 20121112

REACTIONS (3)
  - Urinary retention [Not Recovered/Not Resolved]
  - Cystitis [Recovered/Resolved]
  - Condition aggravated [Not Recovered/Not Resolved]
